FAERS Safety Report 24828702 (Version 2)
Quarter: 2025Q1

REPORT INFORMATION
  Report Type: Spontaneous
  Country: DE (occurrence: DE)
  Receive Date: 20250110
  Receipt Date: 20250201
  Transmission Date: 20250408
  Serious: Yes (Other)
  Sender: AUROBINDO
  Company Number: DE-002147023-PHHY2019DE191819

PATIENT
  Sex: Female
  Weight: 63.5 kg

DRUGS (17)
  1. LETROZOLE [Suspect]
     Active Substance: LETROZOLE
     Indication: Breast cancer metastatic
     Dosage: 2.5 MILLIGRAM, ONCE A DAY
     Route: 048
     Dates: start: 20190110
  2. LETROZOLE [Suspect]
     Active Substance: LETROZOLE
     Indication: Hormone receptor positive HER2 negative breast cancer
  3. FULVESTRANT [Suspect]
     Active Substance: FULVESTRANT
     Indication: Hormone receptor positive HER2 negative breast cancer
     Route: 030
     Dates: start: 20210319, end: 20240415
  4. FULVESTRANT [Suspect]
     Active Substance: FULVESTRANT
     Route: 030
     Dates: start: 20240516
  5. FULVESTRANT [Suspect]
     Active Substance: FULVESTRANT
     Route: 030
  6. KISQALI [Suspect]
     Active Substance: RIBOCICLIB
     Indication: Breast cancer metastatic
     Dosage: 600 MILLIGRAM, ONCE A DAY,QD (SCHEMA 21 DAYS INTAKE, 7 DAYS PAUSE ) DAILY DOSE
     Route: 048
     Dates: start: 20190114, end: 20190114
  7. KISQALI [Suspect]
     Active Substance: RIBOCICLIB
     Indication: Hormone receptor positive HER2 negative breast cancer
     Dosage: 600 MILLIGRAM, ONCE A DAY,QD (SCHEMA 21 DAYS INTAKE, 7 DAYS PAUSE ) DAILY DOSE
     Route: 048
     Dates: start: 20190114, end: 20190217
  8. KISQALI [Suspect]
     Active Substance: RIBOCICLIB
     Dosage: 600 MILLIGRAM, ONCE A DAY, QD (SCHEMA 21 DAYS INTAKE, 7 DAYS PAUSE ) DAILY DOSE
     Route: 048
     Dates: start: 20190218, end: 20190407
  9. KISQALI [Suspect]
     Active Substance: RIBOCICLIB
     Dosage: 600 MILLIGRAM, ONCE A DAY,QD (SCHEMA 21 DAYS INTAKE, 7 DAYS PAUSE ) DAILY DOSE
     Route: 048
     Dates: start: 20190414, end: 20190414
  10. KISQALI [Suspect]
     Active Substance: RIBOCICLIB
     Dosage: 600 MILLIGRAM, ONCE A DAY,QD (SCHEMA 21 DAYS INTAKE, 7 DAYS PAUSE ) DAILY DOSE
     Route: 048
     Dates: start: 20190422, end: 20190519
  11. KISQALI [Suspect]
     Active Substance: RIBOCICLIB
     Dosage: 600 MILLIGRAM, ONCE A DAY,QD (SCHEMA 21 DAYS INTAKE, 7 DAYS PAUSE ) DAILY DOSE
     Route: 048
     Dates: start: 20190527, end: 20190623
  12. KISQALI [Suspect]
     Active Substance: RIBOCICLIB
     Dosage: 600 MILLIGRAM, ONCE A DAY,QD (SCHEMA 21 DAYS INTAKE, 7 DAYS PAUSE ) DAILY DOSE
     Route: 048
     Dates: start: 20190701, end: 20190818
  13. KISQALI [Suspect]
     Active Substance: RIBOCICLIB
     Dosage: 600 MILLIGRAM, ONCE A DAY,QD (SCHEMA 21 DAYS INTAKE, 7 DAYS PAUSE ) DAILY DOSE
     Route: 048
     Dates: start: 20240319, end: 20240512
  14. KISQALI [Suspect]
     Active Substance: RIBOCICLIB
     Dosage: 400 MILLIGRAM, ONCE A DAY
     Route: 065
     Dates: start: 20240523
  15. FASLODEX [Suspect]
     Active Substance: FULVESTRANT
     Indication: HER2 low breast cancer
     Route: 030
  16. FASLODEX [Suspect]
     Active Substance: FULVESTRANT
     Indication: Breast cancer metastatic
     Route: 030
     Dates: start: 20240319, end: 20240415
  17. FASLODEX [Suspect]
     Active Substance: FULVESTRANT
     Route: 030
     Dates: start: 20240516

REACTIONS (3)
  - Neutropenia [Recovering/Resolving]
  - Back pain [Recovered/Resolved]
  - Chest pain [Not Recovered/Not Resolved]

NARRATIVE: CASE EVENT DATE: 20190218
